FAERS Safety Report 21960275 (Version 1)
Quarter: 2023Q1

REPORT INFORMATION
  Report Type: Other
  Country: IN (occurrence: None)
  Receive Date: 20230207
  Receipt Date: 20230207
  Transmission Date: 20230418
  Serious: Yes (Death, Other)
  Sender: FDA-Public Use
  Company Number: IN-Square-000127

PATIENT
  Sex: Female

DRUGS (1)
  1. ACYCLOVIR [Suspect]
     Active Substance: ACYCLOVIR
     Indication: Encephalitis viral
     Dosage: 10 MG PER KG TDS
     Route: 042

REACTIONS (5)
  - Meningoencephalitis viral [Fatal]
  - Therapy non-responder [Fatal]
  - Respiratory distress [Fatal]
  - Condition aggravated [Fatal]
  - Sepsis [Fatal]
